FAERS Safety Report 18771312 (Version 1)
Quarter: 2021Q1

REPORT INFORMATION
  Report Type: Spontaneous
  Country: SE (occurrence: SE)
  Receive Date: 20210121
  Receipt Date: 20210121
  Transmission Date: 20210419
  Serious: Yes (Other)
  Sender: FDA-Public Use
  Company Number: SE-SA-2020SA375535

PATIENT

DRUGS (7)
  1. SULIQUA [Suspect]
     Active Substance: INSULIN GLARGINE\LIXISENATIDE
     Dosage: 10 IU
     Route: 065
     Dates: start: 20201222, end: 202012
  2. VICTOZA [Suspect]
     Active Substance: LIRAGLUTIDE
     Dosage: 1.2 ML
  3. SULIQUA [Suspect]
     Active Substance: INSULIN GLARGINE\LIXISENATIDE
     Dosage: INCREASE WITH 2 UNITS NOW SATURDAY
     Route: 065
     Dates: start: 20201226
  4. INSULIN GLARGINE [Concomitant]
     Active Substance: INSULIN GLARGINE
  5. METFORMIN HYDROCHLORIDE. [Suspect]
     Active Substance: METFORMIN HYDROCHLORIDE
  6. LIXISENATIDE [Concomitant]
     Active Substance: LIXISENATIDE
  7. SULIQUA [Suspect]
     Active Substance: INSULIN GLARGINE\LIXISENATIDE
     Dosage: 15 IU
     Route: 065
     Dates: start: 202012, end: 202012

REACTIONS (5)
  - Diabetes mellitus [Unknown]
  - Malaise [Unknown]
  - Blood glucose increased [Unknown]
  - Cachexia [Unknown]
  - Respiration abnormal [Unknown]

NARRATIVE: CASE EVENT DATE: 202012
